FAERS Safety Report 5042453-4 (Version None)
Quarter: 2006Q3

REPORT INFORMATION
  Report Type: 
  Country: None (occurrence: None)
  Receive Date: 20060705
  Receipt Date: 20060623
  Transmission Date: 20061208
  Serious: Yes (Hospitalization)
  Sender: FDA-Public Use
  Company Number: PHBS2006IN09367

PATIENT
  Age: 60 Year
  Sex: Female

DRUGS (4)
  1. VOVERAN [Suspect]
     Indication: PAIN
  2. AVIL [Concomitant]
  3. DEXONA [Concomitant]
  4. ADRENALINE [Concomitant]
     Dosage: 0.5 ML, UNK
     Route: 030

REACTIONS (9)
  - ASTHENIA [None]
  - DIZZINESS [None]
  - ERYTHEMA [None]
  - FEELING COLD [None]
  - FLUSHING [None]
  - HYPOTENSION [None]
  - NAUSEA [None]
  - PRURITUS [None]
  - VERTIGO [None]
